FAERS Safety Report 6155127-3 (Version None)
Quarter: 2009Q2

REPORT INFORMATION
  Report Type: 
  Country: None (occurrence: None)
  Receive Date: 20090415
  Receipt Date: 20080502
  Transmission Date: 20091009
  Serious: Yes (Hospitalization, Other)
  Sender: FDA-Public Use
  Company Number: US-ASTRAZENECA-2007UW18859

PATIENT
  Age: 13326 Day
  Sex: Female
  Weight: 77.6 kg

DRUGS (29)
  1. SEROQUEL [Suspect]
     Indication: DEPRESSION
     Route: 048
     Dates: end: 20060101
  2. SEROQUEL [Suspect]
     Indication: INSOMNIA
     Route: 048
     Dates: end: 20060101
  3. SEROQUEL [Suspect]
     Indication: SLEEP DISORDER
     Route: 048
     Dates: end: 20060101
  4. SEROQUEL [Suspect]
     Dosage: 25MG - 200MG
     Route: 048
     Dates: start: 20030207, end: 20060319
  5. SEROQUEL [Suspect]
     Dosage: 25MG - 200MG
     Route: 048
     Dates: start: 20030207, end: 20060319
  6. SEROQUEL [Suspect]
     Dosage: 25MG - 200MG
     Route: 048
     Dates: start: 20030207, end: 20060319
  7. SPIRONOLACTONE [Concomitant]
  8. ESTRATEST [Concomitant]
  9. PROTONIX [Concomitant]
  10. PROZAC [Concomitant]
  11. COZAAR [Concomitant]
  12. TRAZODONE HCL [Concomitant]
  13. ATENOLOL [Concomitant]
  14. ZITHROMAX [Concomitant]
  15. LEXAPRO [Concomitant]
  16. RHINOCORT [Concomitant]
  17. PROCARDIA [Concomitant]
  18. LISINOPRIL [Concomitant]
  19. COLACE [Concomitant]
  20. METRONIDAZOLE [Concomitant]
  21. CLINDAMYCIN HCL [Concomitant]
  22. GLYBURIDE [Concomitant]
  23. GLIPIZIDE [Concomitant]
  24. FLONASE [Concomitant]
  25. ULTRAM [Concomitant]
  26. HUMALOG MIX [Concomitant]
  27. NOVOLOG MIX 70/30 [Concomitant]
  28. ACYCLOVIR [Concomitant]
  29. TERAZOL 1 [Concomitant]

REACTIONS (13)
  - ANAEMIA [None]
  - BACK PAIN [None]
  - DIABETES MELLITUS [None]
  - DRUG ABUSE [None]
  - FIBROMYALGIA [None]
  - GASTROOESOPHAGEAL REFLUX DISEASE [None]
  - HEADACHE [None]
  - HYPOGLYCAEMIA [None]
  - PANCREATITIS [None]
  - POST-TRAUMATIC STRESS DISORDER [None]
  - TREMOR [None]
  - VAGINITIS BACTERIAL [None]
  - VULVOVAGINAL DRYNESS [None]
